FAERS Safety Report 8150548-1 (Version None)
Quarter: 2012Q1

REPORT INFORMATION
  Report Type: 
  Country: None (occurrence: None)
  Receive Date: 20120220
  Receipt Date: 20120214
  Transmission Date: 20120608
  Serious: Yes (Other)
  Sender: FDA-Public Use
  Company Number: GB-ASTELLAS-2012EU000663

PATIENT
  Sex: Male
  Weight: 82 kg

DRUGS (1)
  1. VESICARE [Suspect]
     Indication: BLADDER PAIN
     Dosage: 5 MG, UNKNOWN/D
     Route: 048
     Dates: start: 20111011, end: 20120130

REACTIONS (4)
  - POLLAKIURIA [None]
  - VISION BLURRED [None]
  - CONSTIPATION [None]
  - BLADDER PAIN [None]
